FAERS Safety Report 9551401 (Version 1)
Quarter: 2013Q3

REPORT INFORMATION
  Report Type: Spontaneous
  Country: US (occurrence: None)
  Receive Date: 20130923
  Receipt Date: 20130923
  Transmission Date: 20140515
  Serious: Yes (Hospitalization)
  Sender: FDA-Public Use
  Company Number: None

PATIENT
  Age: 54 Year
  Sex: Male
  Weight: 96.6 kg

DRUGS (2)
  1. CISPLATIN [Suspect]
     Indication: HEAD AND NECK CANCER
     Route: 042
     Dates: start: 20110610, end: 20110610
  2. CISPLATIN [Suspect]
     Route: 042
     Dates: start: 20110610, end: 20110610

REACTIONS (2)
  - Blood creatinine increased [None]
  - Blood urea increased [None]
